FAERS Safety Report 5238339-2 (Version None)
Quarter: 2007Q1

REPORT INFORMATION
  Report Type: 
  Country: None (occurrence: None)
  Receive Date: 20061208
  Receipt Date: 20050301
  Transmission Date: 20070707
  Serious: Yes (Other)
  Sender: FDA-Public Use
  Company Number: 2005UW03293

PATIENT
  Age: 46 Year
  Sex: Female
  Weight: 81.646 kg

DRUGS (7)
  1. CRESTOR [Suspect]
     Indication: BLOOD CHOLESTEROL INCREASED
     Dosage: 5 MG PO
     Route: 048
     Dates: start: 20050201, end: 20050227
  2. ZETIA [Concomitant]
  3. ZITHROMAX [Concomitant]
  4. VARELAN [Concomitant]
  5. PREDNISONE [Concomitant]
  6. NEXIUM [Concomitant]
  7. XANAX [Concomitant]

REACTIONS (5)
  - FLUSHING [None]
  - MALAISE [None]
  - MYALGIA [None]
  - SINUSITIS [None]
  - VISION BLURRED [None]
